FAERS Safety Report 9173784 (Version 3)
Quarter: 2013Q2

REPORT INFORMATION
  Report Type: Report from Study
  Country: US (occurrence: US)
  Receive Date: 20130320
  Receipt Date: 20130613
  Transmission Date: 20140414
  Serious: No
  Sender: FDA-Public Use
  Company Number: US-VERTEX PHARMACEUTICALS INC.-2013-003718

PATIENT
  Age: 60 Year
  Sex: Female

DRUGS (11)
  1. VX-950 (TELAPREVIR) [Suspect]
     Indication: HEPATITIS C
     Dosage: UNK
     Route: 048
     Dates: start: 20130114, end: 20130315
  2. PEGASYS [Suspect]
     Indication: HEPATITIS C
     Dosage: UNK
     Dates: start: 20130114, end: 20130315
  3. RIBAVIRIN [Suspect]
     Indication: HEPATITIS C
     Dosage: UNK
     Dates: start: 20130114, end: 20130314
  4. PRESTIGIN [Concomitant]
  5. PERCOCET [Concomitant]
  6. DOXAPHENE [Concomitant]
  7. DEXILANT [Concomitant]
  8. VITAMIN D [Concomitant]
  9. CALCITRIOL [Concomitant]
  10. ASTRAGALUS [Concomitant]
  11. MULTIVITAMIN [Concomitant]

REACTIONS (8)
  - Temporomandibular joint syndrome [Recovered/Resolved]
  - Irritability [Not Recovered/Not Resolved]
  - Stomatitis [Not Recovered/Not Resolved]
  - Dry skin [Not Recovered/Not Resolved]
  - Rash papular [Recovered/Resolved]
  - Anaemia [Not Recovered/Not Resolved]
  - Nausea [Not Recovered/Not Resolved]
  - Pruritus [Unknown]
